FAERS Safety Report 20526471 (Version 1)
Quarter: 2022Q1

REPORT INFORMATION
  Report Type: Spontaneous
  Country: US (occurrence: None)
  Receive Date: 20220225
  Receipt Date: 20220225
  Transmission Date: 20220424
  Serious: Yes (Disabling)
  Sender: FDA-Public Use
  Company Number: None

PATIENT
  Age: 59 Year
  Sex: Male
  Weight: 63 kg

DRUGS (14)
  1. LOXAPINE SUCCINATE [Suspect]
     Active Substance: LOXAPINE SUCCINATE
     Indication: Schizophrenia
     Dosage: OTHER QUANTITY : 30 CAPSULE(S)?FREQUENCY : AT BEDTIME?
     Route: 048
     Dates: start: 20220217
  2. LORAZEPAM [Concomitant]
     Active Substance: LORAZEPAM
  3. BUPROPION [Concomitant]
     Active Substance: BUPROPION
  4. SPIRONOLACTONE [Concomitant]
     Active Substance: SPIRONOLACTONE
  5. METOPROLOL [Concomitant]
     Active Substance: METOPROLOL
  6. ZIPRASIDONE [Concomitant]
     Active Substance: ZIPRASIDONE
  7. OMEPRAZOLE [Concomitant]
     Active Substance: OMEPRAZOLE
  8. METFORMIN [Concomitant]
     Active Substance: METFORMIN HYDROCHLORIDE
  9. LISINOPRIL [Concomitant]
     Active Substance: LISINOPRIL
  10. ZIPRASIDONE [Concomitant]
     Active Substance: ZIPRASIDONE
  11. MONTELUKAST [Concomitant]
     Active Substance: MONTELUKAST SODIUM
  12. ATORVASTATIN [Concomitant]
     Active Substance: ATORVASTATIN
  13. OMEG-3 [Concomitant]
  14. MAGENESIUM OXIDE [Concomitant]

REACTIONS (1)
  - Blood glucose decreased [None]

NARRATIVE: CASE EVENT DATE: 20220225
